FAERS Safety Report 8996152 (Version 1)
Quarter: 2013Q1

REPORT INFORMATION
  Report Type: Report from Study
  Country: GB (occurrence: GB)
  Receive Date: 20130103
  Receipt Date: 20130103
  Transmission Date: 20140127
  Serious: Yes (Other)
  Sender: FDA-Public Use
  Company Number: GB-009507513-1212GBR008937

PATIENT
  Age: 55 Year
  Sex: Male

DRUGS (3)
  1. RIBAVIRIN [Suspect]
     Indication: HEPATITIS C
     Dosage: UNK DF, BID
     Route: 048
     Dates: start: 20121026
  2. TELAPREVIR [Suspect]
     Indication: HEPATITIS C
     Dosage: UNK DF, TID
     Route: 048
     Dates: start: 20121026
  3. INTERFERON ALFA-2B [Suspect]
     Indication: HEPATITIS C
     Dosage: UNK DF, QW
     Dates: start: 20121026

REACTIONS (7)
  - Mood swings [Not Recovered/Not Resolved]
  - Depression [Not Recovered/Not Resolved]
  - Nausea [Not Recovered/Not Resolved]
  - Fatigue [Not Recovered/Not Resolved]
  - Influenza like illness [Not Recovered/Not Resolved]
  - Lethargy [Not Recovered/Not Resolved]
  - Vomiting [Not Recovered/Not Resolved]
